FAERS Safety Report 18584555 (Version 3)
Quarter: 2021Q1

REPORT INFORMATION
  Report Type: Other
  Country: US (occurrence: US)
  Receive Date: 20201207
  Receipt Date: 20210107
  Transmission Date: 20210419
  Serious: Yes (Hospitalization)
  Sender: FDA-Public Use
  Company Number: US-ROCHE-2710973

PATIENT
  Sex: Female
  Weight: 99.6 kg

DRUGS (3)
  1. XELODA [Suspect]
     Active Substance: CAPECITABINE
     Dosage: TAKE 4 TABLET(S), AFTER MEALS FOR 14 DAYS
     Route: 048
  2. XELODA [Suspect]
     Active Substance: CAPECITABINE
     Indication: GALLBLADDER CANCER
     Dosage: TAKE 4 TABLET(S) BY MOUTH TWICE A DAY AFTER MEALS FOR 14 DAYS AS DIRECTED, THERAPY?ONGOING: YES
     Route: 048
  3. XELODA [Suspect]
     Active Substance: CAPECITABINE
     Dosage: TAKE 4 TABLET(S) BY MOUTH TWICE A DAY AFTER MEALS FOR 14 DAYS AS DIRECTED?TAKE 4 TABLET(S) BY MOUTH
     Route: 048

REACTIONS (8)
  - Intervertebral disc disorder [Unknown]
  - Intentional product use issue [Unknown]
  - Ill-defined disorder [Unknown]
  - Product confusion [Unknown]
  - Diarrhoea [Unknown]
  - Off label use [Unknown]
  - Pain [Unknown]
  - Intervertebral disc protrusion [Unknown]
